APPROVED DRUG PRODUCT: PYRIMETHAMINE
Active Ingredient: PYRIMETHAMINE
Strength: 25MG
Dosage Form/Route: TABLET;ORAL
Application: A216983 | Product #001 | TE Code: AB
Applicant: AUROBINDO PHARMA LTD
Approved: Oct 25, 2022 | RLD: No | RS: No | Type: RX